FAERS Safety Report 5015092-9 (Version None)
Quarter: 2006Q2

REPORT INFORMATION
  Report Type: 
  Country: None (occurrence: None)
  Receive Date: 20060414
  Receipt Date: 20060120
  Transmission Date: 20061013
  Serious: No
  Sender: FDA-Public Use
  Company Number: 2005SP003043

PATIENT
  Age: 86 Year
  Sex: Male
  Weight: 87.0906 kg

DRUGS (7)
  1. LUNESTA [Suspect]
     Indication: INSOMNIA
     Dosage: SEE IMAGE
     Route: 048
     Dates: start: 20050801, end: 20050101
  2. LUNESTA [Suspect]
     Indication: INSOMNIA
     Dosage: SEE IMAGE
     Route: 048
     Dates: start: 20050101, end: 20051001
  3. LEVOTHYROXINE SODIUM [Concomitant]
  4. WARFARIN SODIUM [Concomitant]
  5. ALTACE [Concomitant]
  6. ATENOLOL [Concomitant]
  7. DIGOXIN [Concomitant]

REACTIONS (2)
  - DRUG INEFFECTIVE [None]
  - INSOMNIA [None]
